FAERS Safety Report 6249190-9 (Version None)
Quarter: 2009Q2

REPORT INFORMATION
  Report Type: 
  Country: None (occurrence: None)
  Receive Date: 20090629
  Receipt Date: 20090617
  Transmission Date: 20091009
  Serious: Yes (Hospitalization, Other)
  Sender: FDA-Public Use
  Company Number: PHHY2009FR22161

PATIENT
  Sex: Female
  Weight: 63 kg

DRUGS (6)
  1. ACLASTA [Suspect]
     Indication: OSTEOPOROSIS
     Dosage: UNK
     Dates: start: 20080729
  2. LYRICA [Suspect]
     Indication: PAIN
     Dosage: 75 MG, TID
     Route: 048
  3. VASTAREL [Suspect]
     Indication: DIZZINESS
     Dosage: 20 MG, BID
     Route: 048
  4. LEXOMIL [Concomitant]
     Dosage: A QUARTER BID
  5. IXPRIM [Concomitant]
     Dosage: 3 TO 4 DF DAILY
  6. EUPANTOL [Concomitant]
     Indication: GASTROOESOPHAGEAL REFLUX DISEASE
     Dosage: 20 MG, QD
     Route: 048
     Dates: start: 20080520

REACTIONS (16)
  - ANAEMIA [None]
  - ARTHRALGIA [None]
  - ARTHROPATHY [None]
  - BLOOD IRON DECREASED [None]
  - BONE PAIN [None]
  - C-REACTIVE PROTEIN INCREASED [None]
  - CARDIAC MURMUR [None]
  - GAIT DISTURBANCE [None]
  - NERVE ROOT LESION [None]
  - NODULE ON EXTREMITY [None]
  - OSTEOPOROSIS [None]
  - PAIN IN EXTREMITY [None]
  - POSTURE ABNORMAL [None]
  - SPINAL COMPRESSION FRACTURE [None]
  - SPINAL DISORDER [None]
  - VENOUS INSUFFICIENCY [None]
